FAERS Safety Report 9147008 (Version 3)
Quarter: 2013Q2

REPORT INFORMATION
  Report Type: Report from Study
  Country: JP (occurrence: JP)
  Receive Date: 20130307
  Receipt Date: 20130417
  Transmission Date: 20140414
  Serious: Yes (Hospitalization)
  Sender: FDA-Public Use
  Company Number: JP-UCBSA-079601

PATIENT
  Age: 63 Year
  Sex: Female
  Weight: 41.4 kg

DRUGS (10)
  1. CERTOLIZUMAB PEGOL [Suspect]
     Indication: RHEUMATOID ARTHRITIS
     Route: 058
     Dates: start: 20090408
  2. MISOPROSTOL [Concomitant]
     Indication: GASTRITIS PROPHYLAXIS
     Route: 048
  3. PILOCARPINE HYDROCHLORIDE [Concomitant]
     Indication: SJOGREN^S SYNDROME
     Route: 048
     Dates: start: 20121120
  4. FELBINAC [Concomitant]
     Indication: RHEUMATOID ARTHRITIS
  5. SOFALCONE [Concomitant]
     Indication: GASTRITIS PROPHYLAXIS
     Route: 048
     Dates: start: 20100408
  6. LANSOPRAZOLE [Concomitant]
     Indication: GASTRITIS PROPHYLAXIS
     Route: 048
  7. PREDNISOLONE [Concomitant]
     Indication: RHEUMATOID ARTHRITIS
     Route: 048
     Dates: start: 20120727
  8. LOXOPROFEN SODIUM HYDRATE [Concomitant]
     Indication: RHEUMATOID ARTHRITIS
     Route: 062
     Dates: start: 20090924
  9. DICLOFENAC SODIUM [Concomitant]
     Indication: RHEUMATOID ARTHRITIS
     Route: 048
  10. SODIUM HYALURONATE [Concomitant]
     Indication: PROPHYLAXIS
     Dosage: UNKNOWN DOSE
     Route: 047
     Dates: start: 20100301

REACTIONS (1)
  - Enterocolitis [Recovered/Resolved]
